FAERS Safety Report 6434461-3 (Version None)
Quarter: 2009Q4

REPORT INFORMATION
  Report Type: 
  Country: None (occurrence: None)
  Receive Date: 20091110
  Receipt Date: 20091028
  Transmission Date: 20100525
  Serious: Yes (Other)
  Sender: FDA-Public Use
  Company Number: GB-PFIZER INC-2009256600

PATIENT
  Sex: Male

DRUGS (2)
  1. LINEZOLID [Suspect]
  2. CUBICIN [Suspect]
     Dosage: 6 MG/KG, UNK
     Route: 042

REACTIONS (5)
  - DYSPHAGIA [None]
  - GASTRITIS [None]
  - MUSCULAR WEAKNESS [None]
  - NEUROPATHY PERIPHERAL [None]
  - TREMOR [None]
